FAERS Safety Report 6428310-7 (Version None)
Quarter: 2009Q4

REPORT INFORMATION
  Report Type: 
  Country: None (occurrence: None)
  Receive Date: 20091102
  Receipt Date: 20091021
  Transmission Date: 20100525
  Serious: Yes (Hospitalization)
  Sender: FDA-Public Use
  Company Number: 2009SP032272

PATIENT
  Age: 48 Year
  Sex: Male
  Weight: 75 kg

DRUGS (5)
  1. PEG-INTRON [Suspect]
     Indication: HEPATITIS C
     Dosage: 50 MCG; QW;
     Dates: start: 20080624
  2. RIBAVIRIN [Suspect]
     Indication: HEPATITIS C
     Dosage: ; QD;
     Dates: start: 20080624
  3. SIPRALEXA /01588501/ [Concomitant]
  4. TRAZOLAN [Concomitant]
  5. DAKAR [Concomitant]

REACTIONS (1)
  - NO ADVERSE EVENT [None]
